FAERS Safety Report 24119186 (Version 2)
Quarter: 2024Q3

REPORT INFORMATION
  Report Type: Spontaneous
  Country: GB (occurrence: GB)
  Receive Date: 20240722
  Receipt Date: 20240731
  Transmission Date: 20241016
  Serious: Yes (Other)
  Sender: PERRIGO
  Company Number: GB-MHRA-TPP34498286C9823503YC1720451949961

PATIENT
  Age: 96 Year
  Sex: Female
  Weight: 54 kg

DRUGS (11)
  1. ACETAMINOPHEN [Suspect]
     Active Substance: ACETAMINOPHEN
     Indication: Product used for unknown indication
     Dosage: TAKE 1 OR 2 UP TO 4 TIMES A DAY WHEN REQUIRED
     Route: 065
     Dates: start: 20211105, end: 20240515
  2. PROCHLORPERAZINE [Concomitant]
     Active Substance: PROCHLORPERAZINE
     Indication: Product used for unknown indication
     Dosage: ONE TABLET UP TO THREE TIMES DAILY IF NEEDED FOR VERTIGO.
     Route: 065
     Dates: start: 20240501
  3. CLOTRIMAZOLE [Concomitant]
     Active Substance: CLOTRIMAZOLE
     Indication: Product used for unknown indication
     Dosage: APPLY TO THE AFFECTED AREA 2-3 TIMES/DAY FOR 7 ...
     Route: 065
     Dates: start: 20240509, end: 20240606
  4. IBUPROFEN [Concomitant]
     Active Substance: IBUPROFEN
     Indication: Arthralgia
     Dosage: TAKE 1 OR 2 TABLETS ONCE A DAY FOR SHOULDER PAI...
     Route: 065
  5. HYDROXOCOBALAMIN [Concomitant]
     Active Substance: HYDROXOCOBALAMIN
     Indication: Product used for unknown indication
     Dosage: ONE INJECTION EVERY 3 MONTHS
     Route: 065
     Dates: start: 20141114
  6. POLYETHYLENE GLYCOL 3350\POTASSIUM CHLORIDE\SODIUM BICARBONATE\SODIUM [Concomitant]
     Active Substance: POLYETHYLENE GLYCOL 3350\POTASSIUM CHLORIDE\SODIUM BICARBONATE\SODIUM CHLORIDE
     Indication: Product used for unknown indication
     Dosage: TAKE ONE  SACHET TWICE DAILY AS NEEDED FOR BOWELS
     Route: 065
     Dates: start: 20211105
  7. MORPHINE SULFATE [Concomitant]
     Active Substance: MORPHINE SULFATE
     Indication: Pain
     Dosage: 2.5MLS (5MG) EVERY 2 HOURS IF NEEDED FOR PAIN
     Route: 065
     Dates: start: 20211105, end: 20240515
  8. FLUDROCORTISONE [Concomitant]
     Active Substance: FLUDROCORTISONE
     Indication: Product used for unknown indication
     Dosage: 1 DOSAGE FORM, QD
     Route: 065
     Dates: start: 20240315
  9. SENNA [Concomitant]
     Active Substance: SENNA LEAF\SENNOSIDES\SENNOSIDES A AND B
     Indication: Product used for unknown indication
     Dosage: TAKE ONE TABLET AT NIGHT WHEN REQUIRED
     Route: 065
     Dates: start: 20240315
  10. METFORMIN [Concomitant]
     Active Substance: METFORMIN HYDROCHLORIDE
     Indication: Product used for unknown indication
     Dosage: ONE TABLET TWICE DAILY WITH MAIN MEALS
     Route: 065
     Dates: start: 20240327
  11. LINAGLIPTIN [Concomitant]
     Active Substance: LINAGLIPTIN
     Indication: Product used for unknown indication
     Dosage: TAKE ONE DAILY IN THE MORNING
     Route: 065
     Dates: start: 20240404

REACTIONS (1)
  - Hyperglycaemia [Recovered/Resolved]
